FAERS Safety Report 5309301-6 (Version None)
Quarter: 2007Q2

REPORT INFORMATION
  Report Type: 
  Country: None (occurrence: None)
  Receive Date: 20070424
  Receipt Date: 20070424
  Transmission Date: 20071010
  Serious: No
  Sender: FDA-Public Use
  Company Number: None

PATIENT
  Age: 71 Year
  Sex: Female
  Weight: 53 kg

DRUGS (2)
  1. CEFEPIME [Suspect]
     Indication: CYSTIC FIBROSIS
     Dosage: 2 GM Q8HR IV
     Route: 042
     Dates: start: 20030417, end: 20070422
  2. CEFEPIME [Suspect]

REACTIONS (3)
  - CONTUSION [None]
  - PURPURA [None]
  - SPIDER NAEVUS [None]
